FAERS Safety Report 9641705 (Version 1)
Quarter: 2013Q4

REPORT INFORMATION
  Report Type: Spontaneous
  Country: US (occurrence: US)
  Receive Date: 20131023
  Receipt Date: 20131023
  Transmission Date: 20140711
  Serious: Yes (Hospitalization)
  Sender: FDA-Public Use
  Company Number: US-CELGENEUS-163-21660-13103318

PATIENT
  Sex: Male

DRUGS (2)
  1. ABRAXANE [Suspect]
     Indication: PANCREATIC CARCINOMA METASTATIC
     Route: 041
  2. GEMCITABINE [Concomitant]
     Indication: PANCREATIC CARCINOMA METASTATIC
     Route: 065

REACTIONS (2)
  - Influenza like illness [Unknown]
  - Asthenia [Unknown]
